FAERS Safety Report 16647445 (Version 1)
Quarter: 2019Q3

REPORT INFORMATION
  Report Type: Spontaneous
  Country: US (occurrence: US)
  Receive Date: 20190729
  Receipt Date: 20190729
  Transmission Date: 20191004
  Serious: No
  Sender: FDA-Public Use
  Company Number: None

PATIENT
  Sex: Male

DRUGS (1)
  1. ROSUVASTATIN 40 MG [Suspect]
     Active Substance: ROSUVASTATIN

REACTIONS (1)
  - Drug ineffective [None]
